FAERS Safety Report 19407749 (Version 1)
Quarter: 2021Q2

REPORT INFORMATION
  Report Type: Spontaneous
  Country: US (occurrence: US)
  Receive Date: 20210611
  Receipt Date: 20210611
  Transmission Date: 20210717
  Serious: Yes (Other)
  Sender: FDA-Public Use
  Company Number: US-ROCHE-1675593

PATIENT
  Sex: Female

DRUGS (3)
  1. BONIVA [Suspect]
     Active Substance: IBANDRONATE SODIUM
     Indication: BONE DENSITY DECREASED
     Route: 065
     Dates: end: 201409
  2. NEXIUM [Concomitant]
     Active Substance: ESOMEPRAZOLE MAGNESIUM
  3. ATENOLOL. [Concomitant]
     Active Substance: ATENOLOL

REACTIONS (8)
  - Weight decreased [Unknown]
  - Swelling face [Unknown]
  - Gingivitis [Recovered/Resolved]
  - Atrial fibrillation [Not Recovered/Not Resolved]
  - Loose tooth [Recovered/Resolved]
  - Tooth fracture [Unknown]
  - Oral mucosal roughening [Unknown]
  - Toothache [Not Recovered/Not Resolved]
